FAERS Safety Report 6091982-3 (Version None)
Quarter: 2009Q1

REPORT INFORMATION
  Report Type: 
  Country: None (occurrence: None)
  Receive Date: 20090225
  Receipt Date: 20081119
  Transmission Date: 20090719
  Serious: No
  Sender: FDA-Public Use
  Company Number: A0757259A

PATIENT
  Age: 80 Year
  Sex: Female

DRUGS (5)
  1. VALTREX [Suspect]
     Dosage: 1G THREE TIMES PER DAY
     Route: 048
     Dates: start: 20081103, end: 20081111
  2. SYNTHROID [Concomitant]
  3. CELEBREX [Concomitant]
  4. METFORMIN [Concomitant]
  5. LIPITOR [Concomitant]

REACTIONS (2)
  - ABDOMINAL PAIN [None]
  - ANOREXIA [None]
